FAERS Safety Report 10267772 (Version 1)
Quarter: 2014Q2

REPORT INFORMATION
  Report Type: Spontaneous
  Country: US (occurrence: None)
  Receive Date: 20140626
  Receipt Date: 20140626
  Transmission Date: 20141212
  Serious: Yes (Other)
  Sender: FDA-Public Use
  Company Number: None

PATIENT
  Age: 80 Year
  Sex: Female
  Weight: 63.5 kg

DRUGS (1)
  1. TARCEVA [Suspect]
     Indication: SMALL CELL LUNG CANCER
     Dates: start: 20140412, end: 20140430

REACTIONS (7)
  - Pyrexia [None]
  - Blister [None]
  - Vomiting [None]
  - Asthenia [None]
  - Vision blurred [None]
  - Impaired driving ability [None]
  - Visual impairment [None]
